FAERS Safety Report 12254999 (Version 1)
Quarter: 2016Q2

REPORT INFORMATION
  Report Type: Spontaneous
  Country: US (occurrence: US)
  Receive Date: 20160411
  Receipt Date: 20160411
  Transmission Date: 20160815
  Serious: Yes (Hospitalization)
  Sender: FDA-Public Use
  Company Number: US-GILEAD-2016-0207075

PATIENT
  Sex: Female

DRUGS (1)
  1. VIREAD [Suspect]
     Active Substance: TENOFOVIR DISOPROXIL FUMARATE
     Indication: HEPATITIS B
     Route: 065

REACTIONS (8)
  - Nausea [Unknown]
  - Weight decreased [Unknown]
  - Fatigue [Unknown]
  - Tremor [Unknown]
  - Back pain [Unknown]
  - Asthenia [Unknown]
  - Bronchitis [Unknown]
  - Activities of daily living impaired [Unknown]
